FAERS Safety Report 9049354 (Version 1)
Quarter: 2012Q4

REPORT INFORMATION
  Report Type: Spontaneous
  Country: DE (occurrence: None)
  Receive Date: 20120905
  Receipt Date: 20120905
  Transmission Date: 20130627
  Serious: Yes (Other)
  Sender: FDA-Public Use
  Company Number: 218362

PATIENT
  Sex: Female

DRUGS (1)
  1. DAIVOBET [Suspect]
     Indication: PSORIASIS

REACTIONS (3)
  - Lip blister [None]
  - Convulsion [None]
  - Back pain [None]
